FAERS Safety Report 11654550 (Version 4)
Quarter: 2015Q4

REPORT INFORMATION
  Report Type: Report from Study
  Country: US (occurrence: US)
  Receive Date: 20151023
  Receipt Date: 20151230
  Transmission Date: 20160304
  Serious: Yes (Hospitalization, Other)
  Sender: FDA-Public Use
  Company Number: US-CELGENE-USA-2015097343

PATIENT
  Age: 75 Year
  Sex: Male
  Weight: 80.1 kg

DRUGS (25)
  1. CARBOPLATIN. [Suspect]
     Active Substance: CARBOPLATIN
     Indication: NON-SMALL CELL LUNG CANCER
     Dosage: 6MG*MIN/ML
     Route: 041
     Dates: start: 20150917
  2. NOVOLOG [Concomitant]
     Active Substance: INSULIN ASPART
     Indication: PRODUCT USED FOR UNKNOWN INDICATION
     Dosage: 1-5 UNITS
     Route: 058
     Dates: start: 20150927
  3. NOVOLOG [Concomitant]
     Active Substance: INSULIN ASPART
     Dosage: 1-6 UNITS
     Route: 058
     Dates: start: 20150927
  4. SUBLIMAZE [Concomitant]
     Active Substance: FENTANYL CITRATE
     Indication: PRODUCT USED FOR UNKNOWN INDICATION
     Dosage: 1050 MILLIGRAM
     Route: 041
     Dates: start: 20150927, end: 20150927
  5. DILAUDID [Concomitant]
     Active Substance: HYDROMORPHONE HYDROCHLORIDE
     Indication: PAIN
     Dosage: 25 MILLIGRAM
     Route: 041
     Dates: start: 20150927, end: 20150927
  6. COZAAR [Concomitant]
     Active Substance: LOSARTAN POTASSIUM
     Indication: PRODUCT USED FOR UNKNOWN INDICATION
     Dosage: 50 MILLIGRAM
     Route: 048
     Dates: start: 20150928
  7. PROTONIX [Concomitant]
     Active Substance: PANTOPRAZOLE SODIUM
     Indication: PRODUCT USED FOR UNKNOWN INDICATION
     Dosage: 40 MILLIGRAM
     Route: 041
     Dates: start: 20150927
  8. GLUTOSE [Concomitant]
     Active Substance: DEXTROSE
     Indication: BLOOD GLUCOSE DECREASED
     Dosage: 3900 MILLIGRAM
     Route: 048
     Dates: start: 20150927
  9. GLUCOSE [Concomitant]
     Active Substance: DEXTROSE
     Dosage: 28800 MILLIGRAM
     Route: 048
     Dates: start: 20150927
  10. LOPRESSOR [Concomitant]
     Active Substance: METOPROLOL TARTRATE
     Indication: PRODUCT USED FOR UNKNOWN INDICATION
     Route: 048
     Dates: start: 20150928
  11. ZOFRAN [Concomitant]
     Active Substance: ONDANSETRON HYDROCHLORIDE
     Dosage: 8 MILLIGRAM
     Route: 041
     Dates: start: 20150927, end: 20150928
  12. TYLENOL [Concomitant]
     Active Substance: ACETAMINOPHEN
     Indication: PRODUCT USED FOR UNKNOWN INDICATION
     Route: 048
     Dates: start: 20150927
  13. SUBLIMAZE [Concomitant]
     Active Substance: FENTANYL CITRATE
     Route: 048
     Dates: start: 20150927
  14. NEURONTIN [Concomitant]
     Active Substance: GABAPENTIN
     Indication: PRODUCT USED FOR UNKNOWN INDICATION
     Dosage: 1800 MILLIGRAM
     Route: 048
     Dates: start: 20150927
  15. ABRAXANE [Suspect]
     Active Substance: PACLITAXEL
     Indication: NON-SMALL CELL LUNG CANCER
     Dosage: 100 MILLIGRAM/SQ. METER
     Route: 041
     Dates: start: 20150917
  16. NORVASC [Concomitant]
     Active Substance: AMLODIPINE BESYLATE
     Indication: PRODUCT USED FOR UNKNOWN INDICATION
     Dosage: 100 MILLIGRAM
     Route: 048
     Dates: start: 20150928
  17. MAXIPIME [Concomitant]
     Active Substance: CEFEPIME HYDROCHLORIDE
     Indication: PRODUCT USED FOR UNKNOWN INDICATION
     Route: 041
     Dates: start: 20150927
  18. SUBLIMAZE [Concomitant]
     Active Substance: FENTANYL CITRATE
     Route: 041
     Dates: start: 20150927, end: 20150927
  19. GLUCAGON. [Concomitant]
     Active Substance: GLUCAGON
     Indication: BLOOD GLUCOSE DECREASED
     Dosage: 1 MILLIGRAM
     Route: 030
     Dates: start: 20150927
  20. ZOFRAN [Concomitant]
     Active Substance: ONDANSETRON HYDROCHLORIDE
     Indication: NAUSEA
     Dosage: 40 MILLIGRAM
     Route: 041
     Dates: start: 20150927, end: 20150927
  21. SOMA [Concomitant]
     Active Substance: CARISOPRODOL
     Indication: MUSCLE SPASMS
     Route: 048
     Dates: start: 20150927
  22. ZOCOR [Concomitant]
     Active Substance: SIMVASTATIN
     Indication: PRODUCT USED FOR UNKNOWN INDICATION
     Route: 048
     Dates: start: 20150927
  23. GLUTOSE [Concomitant]
     Active Substance: DEXTROSE
     Dosage: 700 MILLIGRAM
     Route: 048
     Dates: start: 20150927
  24. GLUCOSE [Concomitant]
     Active Substance: DEXTROSE
     Indication: PRODUCT USED FOR UNKNOWN INDICATION
     Route: 048
     Dates: start: 20150927
  25. MORPHINE [Concomitant]
     Active Substance: MORPHINE
     Indication: PAIN
     Dosage: 2-10MG
     Route: 041
     Dates: start: 20150928

REACTIONS (21)
  - Febrile neutropenia [Recovered/Resolved]
  - Aspartate aminotransferase increased [Recovered/Resolved]
  - Alanine aminotransferase increased [Recovered/Resolved]
  - Vomiting [Recovered/Resolved]
  - Blood alkaline phosphatase increased [Recovered/Resolved]
  - White blood cell count abnormal [Recovered/Resolved]
  - White blood cell count abnormal [Recovered/Resolved]
  - Atrial tachycardia [Recovered/Resolved]
  - Platelet count abnormal [Recovered/Resolved]
  - Aspartate aminotransferase increased [Recovered/Resolved]
  - Alanine aminotransferase increased [Recovered/Resolved]
  - Blood alkaline phosphatase increased [Recovered/Resolved]
  - Blood bilirubin increased [Recovered/Resolved]
  - Hypokalaemia [Recovered/Resolved]
  - Diarrhoea [Recovered/Resolved]
  - Blood bilirubin increased [Recovered/Resolved]
  - Hypokalaemia [Recovered/Resolved]
  - Platelet count abnormal [Recovered/Resolved]
  - Neutropenia [Recovered/Resolved]
  - Platelet count abnormal [Recovered/Resolved]
  - Platelet count abnormal [Recovered/Resolved]

NARRATIVE: CASE EVENT DATE: 20150927
